FAERS Safety Report 5495021-4 (Version None)
Quarter: 2007Q4

REPORT INFORMATION
  Report Type: 
  Country: None (occurrence: None)
  Receive Date: 20071024
  Receipt Date: 20071015
  Transmission Date: 20080405
  Serious: Yes (Life-Threatening, Other)
  Sender: FDA-Public Use
  Company Number: GBWYE388827SEP07

PATIENT
  Sex: Female

DRUGS (2)
  1. PREMARIN [Suspect]
     Indication: UTERINE LEIOMYOMA
     Dosage: 625UG, FREQUENCY UNKNOWN
     Route: 048
     Dates: start: 19920601, end: 19950101
  2. PREMARIN [Suspect]
     Indication: ENDOMETRIOSIS
     Dosage: 125UG, FREQUENCY UNKNOWN
     Route: 048
     Dates: start: 19950101, end: 20040201

REACTIONS (2)
  - ENDOMETRIAL NEOPLASM [None]
  - METASTASES TO LUNG [None]
